FAERS Safety Report 12560830 (Version 3)
Quarter: 2016Q3

REPORT INFORMATION
  Report Type: Spontaneous
  Country: DE (occurrence: DE)
  Receive Date: 20160715
  Receipt Date: 20160726
  Transmission Date: 20161109
  Serious: Yes (Other)
  Sender: FDA-Public Use
  Company Number: DE-ASTELLAS-2016US026006

PATIENT
  Sex: Female

DRUGS (1)
  1. PROGRAF [Suspect]
     Active Substance: TACROLIMUS\TACROLIMUS ANHYDROUS
     Indication: LIVER TRANSPLANT
     Dosage: 5-0-5 (UNIT UNKNOWN), TWICE DAILY
     Route: 048

REACTIONS (3)
  - Colitis ulcerative [Unknown]
  - Acute kidney injury [Unknown]
  - Drug level fluctuating [Unknown]
